FAERS Safety Report 4748139-5 (Version None)
Quarter: 2005Q3

REPORT INFORMATION
  Report Type: 
  Country: None (occurrence: None)
  Receive Date: 20050818
  Receipt Date: 20050812
  Transmission Date: 20060218
  Serious: Yes (Other)
  Sender: FDA-Public Use
  Company Number: PHEH2005US08952

PATIENT
  Age: 55 Year
  Sex: Female

DRUGS (5)
  1. LESCOL XL [Suspect]
     Dates: start: 20050501
  2. NEXIUM [Concomitant]
  3. SYNTHROID [Concomitant]
  4. ACTOS [Concomitant]
  5. GLUCOPHAGE [Concomitant]

REACTIONS (2)
  - BIOPSY [None]
  - MYCOSIS FUNGOIDES [None]
